FAERS Safety Report 20849625 (Version 2)
Quarter: 2022Q2

REPORT INFORMATION
  Report Type: Spontaneous
  Country: US (occurrence: US)
  Receive Date: 20220519
  Receipt Date: 20220601
  Transmission Date: 20220721
  Serious: Yes (Hospitalization, Disabling)
  Sender: FDA-Public Use
  Company Number: US-TEVA-2022-US-2037101

PATIENT
  Age: 58 Year
  Sex: Male

DRUGS (11)
  1. PREDNISONE [Suspect]
     Active Substance: PREDNISONE
     Indication: Immune-mediated hepatitis
     Dosage: 80 MILLIGRAM DAILY; TOTAL DOSE = 560 MG
     Route: 065
  2. PREDNISONE [Suspect]
     Active Substance: PREDNISONE
     Dosage: 120 MILLIGRAM DAILY; TOTAL DOSE = 600 MG
     Route: 065
  3. PREDNISONE [Suspect]
     Active Substance: PREDNISONE
     Dosage: 150 MILLIGRAM DAILY; TOTAL DOSE = 750 MG
     Route: 065
  4. METHYLPREDNISOLONE [Suspect]
     Active Substance: METHYLPREDNISOLONE
     Indication: Immune-mediated hepatitis
     Dosage: RECEIVED ONE DOSE, 90 MG
     Route: 042
  5. METHYLPREDNISOLONE [Suspect]
     Active Substance: METHYLPREDNISOLONE
     Dosage: 1-2 MG/KG/DAY; TOTAL DOSE WAS APPROX. 350MG
     Route: 042
  6. MYCOPHENOLIC ACID [Suspect]
     Active Substance: MYCOPHENOLIC ACID
     Indication: Immune-mediated hepatitis
     Dosage: 1000 MILLIGRAM DAILY; TOTAL DOSE = 5000 MG
     Route: 065
  7. MYCOPHENOLIC ACID [Suspect]
     Active Substance: MYCOPHENOLIC ACID
     Dosage: 1500 MILLIGRAM DAILY; TOTAL DOSE = 4500 MG
     Route: 065
  8. MYCOPHENOLIC ACID [Suspect]
     Active Substance: MYCOPHENOLIC ACID
     Dosage: 3000 MILLIGRAM DAILY; TOTAL DOSE = 15000 MG
     Route: 065
  9. MYCOPHENOLIC ACID [Suspect]
     Active Substance: MYCOPHENOLIC ACID
     Dosage: 1500 MILLIGRAM DAILY; TOTAL DOSE = 22500 MG
     Route: 065
  10. NIVOLUMAB [Suspect]
     Active Substance: NIVOLUMAB
     Indication: Metastatic malignant melanoma
     Dosage: 1 MG/KG
     Route: 065
  11. IPILIMUMAB [Suspect]
     Active Substance: IPILIMUMAB
     Indication: Metastatic malignant melanoma
     Dosage: 3 MG/KG
     Route: 065

REACTIONS (13)
  - Immune-mediated hepatitis [Recovering/Resolving]
  - Arthralgia [Unknown]
  - Tendon rupture [Unknown]
  - Gait inability [Unknown]
  - Loss of personal independence in daily activities [Unknown]
  - Decreased appetite [Unknown]
  - Walking aid user [Unknown]
  - Weight decreased [Unknown]
  - Myopathy [Unknown]
  - Peripheral motor neuropathy [Unknown]
  - Myositis [Unknown]
  - Tendon disorder [Unknown]
  - Tendon disorder [Unknown]
